FAERS Safety Report 7083913-4 (Version None)
Quarter: 2010Q4

REPORT INFORMATION
  Report Type: 
  Country: None (occurrence: None)
  Receive Date: 20101104
  Receipt Date: 20100118
  Transmission Date: 20110411
  Serious: No
  Sender: FDA-Public Use
  Company Number: US-ABBOTT-10P-163-0620870-00

PATIENT
  Sex: Male
  Weight: 81.72 kg

DRUGS (13)
  1. KALETRA [Suspect]
     Indication: HIV INFECTION
     Dates: start: 20000101
  2. ZYPREXA [Suspect]
     Indication: INSOMNIA
     Dates: start: 20091001
  3. ZYPREXA [Suspect]
  4. ZYPREXA [Suspect]
     Dates: start: 20100111
  5. ATIVAN [Concomitant]
     Indication: ANXIETY
  6. HYDROCODONE [Concomitant]
     Indication: PAIN
  7. FAMCICLOVIR [Concomitant]
     Indication: HERPES VIRUS INFECTION
  8. SERTRALINE HYDROCHLORIDE [Concomitant]
     Indication: DEPRESSION
  9. LEVOTHYROXINE SODIUM [Concomitant]
     Indication: HYPOTHYROIDISM
  10. TRUVADA [Concomitant]
     Indication: HIV INFECTION
  11. TRICOR [Concomitant]
     Indication: BLOOD CHOLESTEROL INCREASED
  12. RAMIPRIL [Concomitant]
     Indication: HYPERTENSION
  13. BUSPIRONE HCL [Concomitant]
     Indication: DEPRESSION

REACTIONS (2)
  - HUNGER [None]
  - WEIGHT INCREASED [None]
